FAERS Safety Report 7349333-X (Version None)
Quarter: 2011Q1

REPORT INFORMATION
  Report Type: 
  Country: None (occurrence: None)
  Receive Date: 20110314
  Receipt Date: 20110228
  Transmission Date: 20110831
  Serious: Yes (Death, Hospitalization)
  Sender: FDA-Public Use
  Company Number: CO-MYLANLABS-2011S1004292

PATIENT
  Age: 6 Month
  Sex: Male

DRUGS (2)
  1. AMOXICILLIN [Concomitant]
     Indication: OTITIS MEDIA ACUTE
     Route: 065
  2. IBUPROFEN [Suspect]
     Indication: OTITIS MEDIA ACUTE
     Route: 065

REACTIONS (6)
  - SEPTIC SHOCK [None]
  - NECROTISING FASCIITIS [None]
  - DIARRHOEA [None]
  - MULTI-ORGAN FAILURE [None]
  - DISSEMINATED INTRAVASCULAR COAGULATION [None]
  - RESPIRATORY FAILURE [None]
